FAERS Safety Report 13520743 (Version 3)
Quarter: 2019Q4

REPORT INFORMATION
  Report Type: Spontaneous
  Country: US (occurrence: US)
  Receive Date: 20170508
  Receipt Date: 20191101
  Transmission Date: 20200122
  Serious: Yes (Hospitalization)
  Sender: FDA-Public Use
  Company Number: US-TEVA-738264ACC

PATIENT
  Sex: Female
  Weight: 71.28 kg

DRUGS (8)
  1. TRACLEER [Concomitant]
     Active Substance: BOSENTAN
  2. XARELTO [Concomitant]
     Active Substance: RIVAROXABAN
  3. EPOPROSTENOL. [Suspect]
     Active Substance: EPOPROSTENOL
     Dosage: 23 NG/KG/MIN
     Route: 042
  4. REVATIO [Concomitant]
     Active Substance: SILDENAFIL CITRATE
  5. EPOPROSTENOL TEVA [Concomitant]
  6. EPOPROSTENOL. [Suspect]
     Active Substance: EPOPROSTENOL
     Dosage: 30 NG PER KG PER MIN, STRENGTH 1.5 MG/VIAL
     Route: 042
     Dates: start: 20150808
  7. COUMADIN [Concomitant]
     Active Substance: WARFARIN SODIUM
  8. EPOPROSTENOL. [Suspect]
     Active Substance: EPOPROSTENOL
     Indication: PULMONARY ARTERIAL HYPERTENSION
     Dosage: 18.0 NG/KG/MIN
     Route: 042
     Dates: start: 20150808

REACTIONS (4)
  - Corona virus infection [Unknown]
  - Pharyngitis streptococcal [Unknown]
  - Pneumonia [Unknown]
  - Rhinovirus infection [Unknown]
